FAERS Safety Report 7353863-4 (Version None)
Quarter: 2011Q1

REPORT INFORMATION
  Report Type: 
  Country: None (occurrence: None)
  Receive Date: 20110315
  Receipt Date: 20110308
  Transmission Date: 20110831
  Serious: Yes (Other)
  Sender: FDA-Public Use
  Company Number: US-US-EMD SERONO, INC.-7046683

PATIENT
  Sex: Male
  Weight: 93 kg

DRUGS (2)
  1. MAGNETIC RESONANCE IMAGING CONTRAST DYE [Suspect]
  2. REBIF [Suspect]
     Indication: MULTIPLE SCLEROSIS
     Route: 058
     Dates: start: 20101015

REACTIONS (1)
  - ANAPHYLACTIC SHOCK [None]
